FAERS Safety Report 10066413 (Version 2)
Quarter: 2015Q2

REPORT INFORMATION
  Report Type: Spontaneous
  Country: US (occurrence: US)
  Receive Date: 20140408
  Receipt Date: 20150410
  Transmission Date: 20150821
  Serious: Yes (Death, Life-Threatening, Hospitalization, Other)
  Sender: FDA-Public Use
  Company Number: US-009507513-1404USA004105

PATIENT
  Sex: Male
  Weight: 83.9 kg

DRUGS (2)
  1. JANUMET [Suspect]
     Active Substance: METFORMIN HYDROCHLORIDE\SITAGLIPTIN PHOSPHATE
     Indication: TYPE 2 DIABETES MELLITUS
     Dosage: 50/1000 MG, QD
     Route: 048
     Dates: start: 20121204, end: 20130516
  2. JANUMET [Suspect]
     Active Substance: METFORMIN HYDROCHLORIDE\SITAGLIPTIN PHOSPHATE
     Dosage: 50/1000 MG, BID
     Route: 048
     Dates: start: 20130301, end: 20130516

REACTIONS (24)
  - Radiotherapy [Unknown]
  - Pancreatic carcinoma metastatic [Fatal]
  - Nerve block [Unknown]
  - Anxiety [Unknown]
  - Depression [Unknown]
  - Sinus operation [Unknown]
  - Intervertebral disc degeneration [Unknown]
  - Pain [Not Recovered/Not Resolved]
  - Thrombophlebitis superficial [Unknown]
  - Ligament sprain [Unknown]
  - Inappropriate schedule of drug administration [Unknown]
  - Metastases to liver [Unknown]
  - Irritable bowel syndrome [Unknown]
  - Osteoarthritis [Unknown]
  - Haemangioma [Unknown]
  - Myalgia [Unknown]
  - Back pain [Recovering/Resolving]
  - Insomnia [Unknown]
  - Rash [Unknown]
  - Haemangioma of bone [Unknown]
  - Intervertebral disc protrusion [Unknown]
  - Lipid metabolism disorder [Unknown]
  - Hernia repair [Unknown]
  - Arthralgia [Unknown]

NARRATIVE: CASE EVENT DATE: 20121204
